FAERS Safety Report 5217055-7 (Version None)
Quarter: 2007Q1

REPORT INFORMATION
  Report Type: 
  Country: None (occurrence: None)
  Receive Date: 20070124
  Receipt Date: 20070115
  Transmission Date: 20070707
  Serious: Yes (Hospitalization)
  Sender: FDA-Public Use
  Company Number: JP-ROCHE-478433

PATIENT
  Age: 64 Year
  Sex: Female

DRUGS (5)
  1. PERDIPINE [Suspect]
     Indication: HYPERTENSION
     Route: 048
  2. LIPITOR [Suspect]
     Indication: DRUG USE FOR UNKNOWN INDICATION
     Route: 048
     Dates: start: 20060814
  3. LIPITOR [Suspect]
     Route: 048
  4. MUCOSTA [Concomitant]
     Route: 048
  5. TOUGHMAC E [Concomitant]
     Route: 048

REACTIONS (2)
  - ERYTHEMA MULTIFORME [None]
  - PURPURA [None]
